FAERS Safety Report 18600330 (Version 1)
Quarter: 2020Q4

REPORT INFORMATION
  Report Type: Spontaneous
  Country: US (occurrence: US)
  Receive Date: 20201210
  Receipt Date: 20201210
  Transmission Date: 20210114
  Serious: Yes (Death, Other)
  Sender: FDA-Public Use
  Company Number: US-AMGEN-USASP2020200047

PATIENT
  Age: 19 Year
  Sex: Female

DRUGS (19)
  1. CYTARABINE. [Concomitant]
     Active Substance: CYTARABINE
     Dosage: 2000 MILLIGRAM/SQ. METER, QD
     Route: 042
  2. CYTARABINE. [Concomitant]
     Active Substance: CYTARABINE
     Dosage: 3000 MILLIGRAM/SQ. METER, Q 12 HOUR
     Route: 042
  3. CYTARABINE. [Concomitant]
     Active Substance: CYTARABINE
     Dosage: 500 MILLIGRAM/SQ. METER, 12 H
     Route: 042
  4. MELPHALAN. [Concomitant]
     Active Substance: MELPHALAN
     Dosage: 140 MILLIGRAM/SQ. METER
     Route: 042
  5. FLUDARABINE [Concomitant]
     Active Substance: FLUDARABINE PHOSPHATE
     Dosage: 30 MILLIGRAM/SQ. METER, QD
     Route: 042
  6. FLUDARABINE [Concomitant]
     Active Substance: FLUDARABINE PHOSPHATE
     Dosage: 40 MILLIGRAM/SQ. METER, QD
     Route: 042
  7. CYTARABINE. [Concomitant]
     Active Substance: CYTARABINE
     Dosage: 100 MILLIGRAM, IT
  8. CYTARABINE. [Concomitant]
     Active Substance: CYTARABINE
     Dosage: 100 MILLIGRAM, IT
  9. CYCLOPHOSPHAMIDE. [Concomitant]
     Active Substance: CYCLOPHOSPHAMIDE
     Dosage: 60 MILLIGRAM/KILOGRAM, QD
     Route: 042
  10. CYCLOPHOSPHAMIDE. [Concomitant]
     Active Substance: CYCLOPHOSPHAMIDE
     Dosage: 150 MILLIGRAM/SQ. METER, PER 12 H
     Route: 042
  11. CYCLOPHOSPHAMIDE. [Concomitant]
     Active Substance: CYCLOPHOSPHAMIDE
     Dosage: 500 MILLIGRAM/SQ. METER, QD
     Route: 042
  12. CYCLOPHOSPHAMIDE. [Concomitant]
     Active Substance: CYCLOPHOSPHAMIDE
     Dosage: 50 MILLIGRAM/KILOGRAM, QD
     Route: 042
  13. BLINATUMOMAB [Suspect]
     Active Substance: BLINATUMOMAB
     Indication: B PRECURSOR TYPE ACUTE LEUKAEMIA
     Dosage: UNK
     Route: 065
  14. DEXAMETHASONE. [Concomitant]
     Active Substance: DEXAMETHASONE
     Dosage: 20 MILLIGRAM/SQ. METER, QD
  15. CYTARABINE. [Concomitant]
     Active Substance: CYTARABINE
     Dosage: 500 MILLIGRAM/SQ. METER, 12 H
     Route: 042
  16. VINCRISTINE [Concomitant]
     Active Substance: VINCRISTINE
     Dosage: 2 MILLIGRAM
     Route: 042
  17. VINCRISTINE [Concomitant]
     Active Substance: VINCRISTINE
     Dosage: 1 UNK
     Route: 042
  18. DOXORUBICIN [Concomitant]
     Active Substance: DOXORUBICIN
  19. FILGRASTIM [Suspect]
     Active Substance: FILGRASTIM
     Indication: NEUTROPENIA
     Dosage: 300 MICROGRAM
     Route: 065

REACTIONS (5)
  - Graft versus host disease in eye [Recovered/Resolved]
  - Graft versus host disease in gastrointestinal tract [Recovered/Resolved]
  - Leukaemic infiltration extramedullary [Not Recovered/Not Resolved]
  - Graft versus host disease in skin [Recovered/Resolved]
  - Sepsis [Fatal]
